FAERS Safety Report 18422202 (Version 1)
Quarter: 2020Q4

REPORT INFORMATION
  Report Type: Spontaneous
  Country: US (occurrence: US)
  Receive Date: 20201023
  Receipt Date: 20201023
  Transmission Date: 20210114
  Serious: Yes (Other)
  Sender: FDA-Public Use
  Company Number: US-ASTRAZENECA-2020SF36399

PATIENT
  Sex: Male
  Weight: 61.2 kg

DRUGS (2)
  1. TAGRISSO [Suspect]
     Active Substance: OSIMERTINIB
     Indication: LUNG NEOPLASM MALIGNANT
     Route: 048
     Dates: start: 201907, end: 202002
  2. OMEPRAZOLE. [Suspect]
     Active Substance: OMEPRAZOLE
     Indication: GASTROOESOPHAGEAL REFLUX DISEASE
     Dosage: TAKING 1 PER DAY
     Route: 048

REACTIONS (5)
  - Gastrooesophageal reflux disease [Recovering/Resolving]
  - Lung neoplasm malignant [Unknown]
  - Metastases to bone [Unknown]
  - Pain [Unknown]
  - Weight decreased [Unknown]
